FAERS Safety Report 5903751-2 (Version None)
Quarter: 2008Q3

REPORT INFORMATION
  Report Type: 
  Country: None (occurrence: None)
  Receive Date: 20080930
  Receipt Date: 20080919
  Transmission Date: 20090109
  Serious: Yes (Hospitalization)
  Sender: FDA-Public Use
  Company Number: US-ELI_LILLY_AND_COMPANY-US200809004511

PATIENT
  Age: 56 Year
  Sex: Female

DRUGS (11)
  1. BYETTA [Suspect]
     Indication: TYPE 2 DIABETES MELLITUS
     Route: 058
  2. HUMALOG [Concomitant]
  3. METFORMIN HCL [Concomitant]
  4. SYNTHROID [Concomitant]
  5. NORVASC [Concomitant]
  6. LOTENSIN [Concomitant]
     Dosage: 40 MG, 2/D
  7. HYZAAR [Concomitant]
     Dosage: UNK, 2/D
  8. ASPIRIN [Concomitant]
  9. ADVAIR DISKUS 100/50 [Concomitant]
  10. SINGULAIR [Concomitant]
  11. ALBUTEROL [Concomitant]

REACTIONS (1)
  - PANCREATITIS [None]
